FAERS Safety Report 14313947 (Version 2)
Quarter: 2018Q1

REPORT INFORMATION
  Report Type: Spontaneous
  Country: IT (occurrence: IT)
  Receive Date: 20171221
  Receipt Date: 20180306
  Transmission Date: 20180509
  Serious: Yes (Other)
  Sender: FDA-Public Use
  Company Number: IT-GLAXOSMITHKLINE-IT2017193157

PATIENT
  Age: 55 Year
  Sex: Male

DRUGS (2)
  1. ROPINIROLE. [Suspect]
     Active Substance: ROPINIROLE
     Indication: AKINESIA
     Dosage: INITIAL DOSE UNKNOWN; LATER TITRATED TO 8MG DAILY
     Route: 065
  2. LEVODOPA [Suspect]
     Active Substance: LEVODOPA
     Indication: AKINESIA
     Dosage: 150 MG, UNK
     Route: 065

REACTIONS (5)
  - Abnormal behaviour [Recovered/Resolved]
  - Agitation [Recovered/Resolved]
  - Obsessive-compulsive disorder [Recovered/Resolved]
  - Confusional state [Recovered/Resolved]
  - Drug effect incomplete [Unknown]
